FAERS Safety Report 9456712 (Version 3)
Quarter: 2013Q3

REPORT INFORMATION
  Report Type: Report from Study
  Country: DE (occurrence: DE)
  Receive Date: 20130813
  Receipt Date: 20130827
  Transmission Date: 20140515
  Serious: Yes (Hospitalization)
  Sender: FDA-Public Use
  Company Number: DE-AMGEN-GBRNI2013056316

PATIENT
  Age: 74 Year
  Sex: Male

DRUGS (5)
  1. PANITUMUMAB [Suspect]
     Indication: COLORECTAL CANCER METASTATIC
     Dosage: UNK UNK, Q2WK
     Route: 042
     Dates: start: 20130523
  2. OXALIPLATIN [Concomitant]
     Dosage: UNK UNK, QWK
     Route: 042
     Dates: start: 20130522
  3. 5-FU [Concomitant]
     Dosage: UNK UNK, QWK
     Route: 042
     Dates: start: 20130523
  4. FOLINSAEURE ACTAVIS [Concomitant]
     Dosage: UNK UNK, QWK
     Route: 042
     Dates: start: 20130523
  5. CLOPIDOGREL [Concomitant]
     Dosage: UNK UNK, QD
     Route: 048
     Dates: start: 2010

REACTIONS (1)
  - Gastrointestinal haemorrhage [Recovered/Resolved]
